FAERS Safety Report 10737411 (Version 1)
Quarter: 2015Q1

REPORT INFORMATION
  Report Type: Other
  Country: US (occurrence: US)
  Receive Date: 20150126
  Receipt Date: 20150126
  Transmission Date: 20150721
  Serious: Yes (Death)
  Sender: FDA-Public Use
  Company Number: US-LEHIGH_VALLEY-USA-POI0580201500046

PATIENT
  Age: 37 Year
  Sex: Female

DRUGS (6)
  1. OXYCODONE HCL CAPSULES [Suspect]
     Active Substance: OXYCODONE HYDROCHLORIDE
     Dates: end: 2013
  2. ORPHENADRINE [Suspect]
     Active Substance: ORPHENADRINE
     Dates: end: 2013
  3. OMEPRAZOLE. [Suspect]
     Active Substance: OMEPRAZOLE
     Dates: end: 2013
  4. VENLAFAXINE [Suspect]
     Active Substance: VENLAFAXINE HYDROCHLORIDE
     Dates: end: 2013
  5. CETIRIZINE [Suspect]
     Active Substance: CETIRIZINE HYDROCHLORIDE
     Dates: end: 2013
  6. GABAPENTIN. [Suspect]
     Active Substance: GABAPENTIN
     Dates: end: 2013

REACTIONS (3)
  - Respiratory arrest [None]
  - Completed suicide [None]
  - Cardiac arrest [None]

NARRATIVE: CASE EVENT DATE: 2013
